FAERS Safety Report 23971390 (Version 1)
Quarter: 2024Q2

REPORT INFORMATION
  Report Type: Spontaneous
  Country: US (occurrence: None)
  Receive Date: 20240612
  Receipt Date: 20240612
  Transmission Date: 20240715
  Serious: Yes (Other)
  Sender: FDA-Public Use
  Company Number: None

PATIENT
  Age: 39 Year
  Sex: Female
  Weight: 47.25 kg

DRUGS (1)
  1. OSELTAMIVIR PHOSPHATE [Suspect]
     Active Substance: OSELTAMIVIR PHOSPHATE
     Indication: Influenza
     Dosage: FREQUENCY : TWICE A DAY?
     Dates: start: 20240606, end: 20240609

REACTIONS (4)
  - Urticaria [None]
  - Lip swelling [None]
  - Ear swelling [None]
  - Hypertension [None]

NARRATIVE: CASE EVENT DATE: 20240609
